FAERS Safety Report 25726895 (Version 1)
Quarter: 2025Q3

REPORT INFORMATION
  Report Type: Spontaneous
  Country: US (occurrence: US)
  Receive Date: 20250826
  Receipt Date: 20250826
  Transmission Date: 20251021
  Serious: No
  Sender: COREPHARMA LLC
  Company Number: US-CorePharma LLC-2183234

PATIENT
  Age: 35 Year

DRUGS (1)
  1. SUMATRIPTAN SUCCINATE [Suspect]
     Active Substance: SUMATRIPTAN SUCCINATE
     Indication: Migraine

REACTIONS (3)
  - Migraine [Unknown]
  - Nausea [Unknown]
  - Malaise [Unknown]
